FAERS Safety Report 8174047-6 (Version None)
Quarter: 2012Q1

REPORT INFORMATION
  Report Type: 
  Country: None (occurrence: None)
  Receive Date: 20120229
  Receipt Date: 20120214
  Transmission Date: 20120608
  Serious: Yes (Other)
  Sender: FDA-Public Use
  Company Number: US-ARROW GEN-2012-02626

PATIENT
  Age: 30 Year
  Sex: Female
  Weight: 58.957 kg

DRUGS (1)
  1. DOXYCYCLINE HYCLATE [Suspect]
     Indication: MALARIA PROPHYLAXIS
     Dosage: 100 MG DAILY
     Route: 048
     Dates: start: 20110701, end: 20110701

REACTIONS (4)
  - TEMPERATURE INTOLERANCE [None]
  - DYSPHAGIA [None]
  - OESOPHAGEAL ULCER [None]
  - OESOPHAGEAL SPASM [None]
